FAERS Safety Report 5191694-4 (Version None)
Quarter: 2006Q4

REPORT INFORMATION
  Report Type: 
  Country: None (occurrence: None)
  Receive Date: 20061226
  Receipt Date: 20061215
  Transmission Date: 20070319
  Serious: Yes (Death, Other)
  Sender: FDA-Public Use
  Company Number: GB-MERCK-0612GBR00079

PATIENT
  Age: 63 Year
  Sex: Female

DRUGS (2)
  1. FOSAMAX [Suspect]
     Indication: OSTEOPOROSIS POSTMENOPAUSAL
     Route: 048
     Dates: start: 20061201, end: 20061201
  2. FOSAMAX [Suspect]
     Route: 048
     Dates: start: 20040101

REACTIONS (3)
  - DEATH [None]
  - DRUG INTOLERANCE [None]
  - STEVENS-JOHNSON SYNDROME [None]
